FAERS Safety Report 25842892 (Version 1)
Quarter: 2025Q3

REPORT INFORMATION
  Report Type: Spontaneous
  Country: US (occurrence: US)
  Receive Date: 20250924
  Receipt Date: 20250924
  Transmission Date: 20251021
  Serious: No
  Sender: NOVO NORDISK
  Company Number: US-NOVOPROD-1483576

PATIENT
  Age: 16 Year
  Sex: Female

DRUGS (1)
  1. TRETTEN [Suspect]
     Active Substance: FACTOR XIII CONCENTRATE (HUMAN)
     Indication: Factor XIII deficiency

REACTIONS (1)
  - Menstruation delayed [Unknown]
